FAERS Safety Report 9738663 (Version 1)
Quarter: 2013Q4

REPORT INFORMATION
  Report Type: Spontaneous
  Country: DE (occurrence: DE)
  Receive Date: 20131209
  Receipt Date: 20131209
  Transmission Date: 20140711
  Serious: Yes (Hospitalization)
  Sender: FDA-Public Use
  Company Number: DE-BIOGENIDEC-2013BI117143

PATIENT
  Age: 50 Year
  Sex: Female

DRUGS (1)
  1. AVONEX [Suspect]
     Indication: MULTIPLE SCLEROSIS
     Route: 030
     Dates: start: 20120101

REACTIONS (5)
  - Tibia fracture [Recovered/Resolved]
  - Ligament rupture [Recovered/Resolved]
  - Meniscus injury [Recovered/Resolved]
  - Cartilage injury [Recovered/Resolved]
  - Accident [Recovered/Resolved]
